FAERS Safety Report 17921242 (Version 2)
Quarter: 2020Q3

REPORT INFORMATION
  Report Type: Spontaneous
  Country: US (occurrence: US)
  Receive Date: 20200622
  Receipt Date: 20200703
  Transmission Date: 20201103
  Serious: No
  Sender: FDA-Public Use
  Company Number: US-ELI_LILLY_AND_COMPANY-US202006009019

PATIENT
  Sex: Female

DRUGS (1)
  1. FORTEO [Suspect]
     Active Substance: TERIPARATIDE
     Indication: PRODUCT USED FOR UNKNOWN INDICATION
     Dosage: UNK UNK, UNKNOWN
     Dates: start: 20200602

REACTIONS (7)
  - Temporomandibular joint syndrome [Unknown]
  - Nausea [Recovered/Resolved]
  - Bruxism [Unknown]
  - Blood calcium decreased [Unknown]
  - Pain [Not Recovered/Not Resolved]
  - Hypotension [Unknown]
  - Dizziness [Not Recovered/Not Resolved]

NARRATIVE: CASE EVENT DATE: 20200602
